FAERS Safety Report 25820829 (Version 1)
Quarter: 2025Q3

REPORT INFORMATION
  Report Type: Spontaneous
  Country: EU (occurrence: EU)
  Receive Date: 20250919
  Receipt Date: 20250919
  Transmission Date: 20251021
  Serious: Yes (Hospitalization)
  Sender: AUROBINDO
  Company Number: EU-GRUNENTHAL-2025-113704

PATIENT
  Age: 36 Year
  Sex: Female
  Weight: 46 kg

DRUGS (11)
  1. TRAMADOL [Suspect]
     Active Substance: TRAMADOL
     Indication: Product used for unknown indication
     Route: 065
  2. QUTENZA [Suspect]
     Active Substance: CAPSAICIN
     Indication: Small fibre neuropathy
     Route: 003
     Dates: start: 20250814, end: 20250814
  3. QUTENZA [Suspect]
     Active Substance: CAPSAICIN
     Indication: Erythromelalgia
  4. QUTENZA [Suspect]
     Active Substance: CAPSAICIN
     Indication: Carpal tunnel syndrome
  5. QUTENZA [Suspect]
     Active Substance: CAPSAICIN
     Indication: Extrapyramidal disorder
  6. QUTENZA [Suspect]
     Active Substance: CAPSAICIN
     Indication: Spinal disorder
  7. LYRICA [Concomitant]
     Active Substance: PREGABALIN
     Indication: Product used for unknown indication
     Route: 065
  8. GABAPENTIN [Concomitant]
     Active Substance: GABAPENTIN
     Indication: Product used for unknown indication
     Route: 065
  9. AMITRIPTYLINE HYDROCHLORIDE [Concomitant]
     Active Substance: AMITRIPTYLINE HYDROCHLORIDE
     Indication: Product used for unknown indication
     Route: 065
  10. LEVOCARNITINE [Concomitant]
     Active Substance: LEVOCARNITINE
     Indication: Product used for unknown indication
     Route: 065
  11. ACUPAN [Concomitant]
     Active Substance: NEFOPAM HYDROCHLORIDE
     Indication: Headache
     Route: 065
     Dates: start: 20250814

REACTIONS (4)
  - Application site discomfort [Not Recovered/Not Resolved]
  - Application site warmth [Not Recovered/Not Resolved]
  - Application site pain [Not Recovered/Not Resolved]
  - Drug hypersensitivity [Unknown]

NARRATIVE: CASE EVENT DATE: 20250814
